FAERS Safety Report 7050527-1 (Version None)
Quarter: 2010Q4

REPORT INFORMATION
  Report Type: 
  Country: None (occurrence: None)
  Receive Date: 20101018
  Receipt Date: 20101006
  Transmission Date: 20110411
  Serious: Yes (Life-Threatening, Hospitalization, Other)
  Sender: FDA-Public Use
  Company Number: IL-PFIZER INC-2008002443

PATIENT
  Age: 65 Year
  Sex: Male

DRUGS (3)
  1. SUNITINIB MALATE [Suspect]
     Indication: METASTATIC RENAL CELL CARCINOMA
     Dosage: 25 MG, DAILY, SCHEDULE 4/2
     Route: 048
     Dates: start: 20060706, end: 20071230
  2. LEVOTHYROXINE SODIUM [Concomitant]
     Indication: HYPOTHYROIDISM
     Route: 048
     Dates: start: 20070301
  3. ACETAMINOPHEN AND OXYCODONE HCL [Concomitant]
     Route: 048
     Dates: start: 20070501

REACTIONS (9)
  - ANAEMIA [None]
  - DEHYDRATION [None]
  - DIALYSIS [None]
  - DISEASE PROGRESSION [None]
  - DISEASE RECURRENCE [None]
  - ILEUS [None]
  - LOSS OF CONSCIOUSNESS [None]
  - METASTATIC RENAL CELL CARCINOMA [None]
  - RENAL FAILURE [None]
